FAERS Safety Report 18315996 (Version 1)
Quarter: 2020Q3

REPORT INFORMATION
  Report Type: Spontaneous
  Country: DE (occurrence: DE)
  Receive Date: 20200927
  Receipt Date: 20200927
  Transmission Date: 20201103
  Serious: Yes (Hospitalization)
  Sender: FDA-Public Use
  Company Number: DE-TEVA-2020-DE-1830679

PATIENT
  Age: 47 Year
  Sex: Female
  Weight: 45 kg

DRUGS (8)
  1. KREON [Concomitant]
     Active Substance: PANCRELIPASE
     Dosage: NK MG, NK
  2. INSULIN HUMAN [Concomitant]
     Active Substance: INSULIN HUMAN
     Dosage: NK IE, ACCORDING TO THE SCHEME
  3. INSULIN GLARGIN [Concomitant]
     Active Substance: INSULIN GLARGINE
     Dosage: NK IE, ACCORDING TO THE SCHEME
  4. FLUOROURACIL. [Suspect]
     Active Substance: FLUOROURACIL
     Dosage: NK MG, LAST 22072020
     Dates: end: 20200722
  5. OXYCODON [Concomitant]
     Active Substance: OXYCODONE
     Dosage: NK MG, IF NECESSARY
  6. IBUPROFEN. [Concomitant]
     Active Substance: IBUPROFEN
     Dosage: NK MG, IF NECESSARY
  7. FOLINSAURE [Suspect]
     Active Substance: LEUCOVORIN
     Dosage: NK MG, LAST 22072020
     Dates: end: 20200722
  8. OXALIPLATIN. [Suspect]
     Active Substance: OXALIPLATIN
     Dosage: NK MG, LAST 22072020
     Dates: end: 20200722

REACTIONS (7)
  - Condition aggravated [Unknown]
  - General physical health deterioration [Unknown]
  - Weight decreased [Unknown]
  - Oropharyngeal pain [Unknown]
  - Thirst [Unknown]
  - Dysphagia [Unknown]
  - Dehydration [Unknown]
